FAERS Safety Report 5842222-9 (Version None)
Quarter: 2008Q3

REPORT INFORMATION
  Report Type: 
  Country: None (occurrence: None)
  Receive Date: 20080731
  Receipt Date: 20080617
  Transmission Date: 20090109
  Serious: No
  Sender: FDA-Public Use
  Company Number: US200806004105

PATIENT
  Sex: Female

DRUGS (7)
  1. BYETTA [Suspect]
     Dosage: SEE IMAGE
     Route: 058
     Dates: start: 20080101, end: 20080101
  2. BYETTA [Suspect]
     Dosage: SEE IMAGE
     Route: 058
     Dates: start: 20080101, end: 20080101
  3. BYETTA [Suspect]
     Dosage: SEE IMAGE
     Route: 058
     Dates: start: 20080331, end: 20080101
  4. BYETTA [Suspect]
     Dosage: SEE IMAGE
     Route: 058
     Dates: start: 20080101, end: 20080617
  5. BYETTA [Suspect]
     Dosage: SEE IMAGE
     Route: 058
     Dates: start: 20080331, end: 20080617
  6. EXENATIDE PEN, DISPOSABLE DEVICE (EXENATIDE PEN) PEN,DISPOSABLE [Concomitant]
  7. NOVOLIN N [Concomitant]

REACTIONS (2)
  - DRUG PRESCRIBING ERROR [None]
  - OVERDOSE [None]
